FAERS Safety Report 19097559 (Version 1)
Quarter: 2021Q2

REPORT INFORMATION
  Report Type: Spontaneous
  Country: US (occurrence: US)
  Receive Date: 20210406
  Receipt Date: 20210406
  Transmission Date: 20210717
  Serious: No
  Sender: FDA-Public Use
  Company Number: None

PATIENT
  Sex: Female

DRUGS (1)
  1. CAPECITABINE. [Suspect]
     Active Substance: CAPECITABINE
     Indication: COLON CANCER
     Route: 048
     Dates: start: 20210105

REACTIONS (6)
  - Dehydration [None]
  - Eye discharge [None]
  - Dry skin [None]
  - Nausea [None]
  - Oral mucosal discolouration [None]
  - Lacrimation increased [None]
